FAERS Safety Report 9823251 (Version 1)
Quarter: 2014Q1

REPORT INFORMATION
  Report Type: Spontaneous
  Country: US (occurrence: US)
  Receive Date: 20140116
  Receipt Date: 20140116
  Transmission Date: 20141002
  Serious: Yes (Other)
  Sender: FDA-Public Use
  Company Number: US-NAPPMUNDI-USA-2013-0098733

PATIENT
  Sex: 0

DRUGS (1)
  1. DILAUDID INJECTION [Suspect]
     Indication: ACCIDENTAL EXPOSURE TO PRODUCT

REACTIONS (2)
  - Accidental exposure to product [Unknown]
  - Injury associated with device [Unknown]
